FAERS Safety Report 18684334 (Version 2)
Quarter: 2022Q2

REPORT INFORMATION
  Report Type: Spontaneous
  Country: US (occurrence: US)
  Receive Date: 20201230
  Receipt Date: 20220427
  Transmission Date: 20220721
  Serious: No
  Sender: FDA-Public Use
  Company Number: US-PFIZER INC-2019483637

PATIENT
  Age: 72 Year
  Sex: Female

DRUGS (1)
  1. NORPACE CR [Suspect]
     Active Substance: DISOPYRAMIDE PHOSPHATE
     Dosage: 150 MG, 4X/DAY
     Route: 048

REACTIONS (2)
  - Off label use [Unknown]
  - Product dispensing error [Unknown]
